FAERS Safety Report 4613535-3 (Version None)
Quarter: 2005Q1

REPORT INFORMATION
  Report Type: 
  Country: None (occurrence: None)
  Receive Date: 20050318
  Receipt Date: 20050318
  Transmission Date: 20050727
  Serious: Yes (Life-Threatening)
  Sender: FDA-Public Use
  Company Number: None

PATIENT
  Sex: Male
  Weight: 82 kg

DRUGS (1)
  1. DIGOXIN [Suspect]
     Indication: ATRIAL FIBRILLATION
     Dosage: 0.125 MG PO QD
     Route: 048
     Dates: start: 20041001, end: 20041201

REACTIONS (3)
  - BRADYCARDIA [None]
  - CARDIAC ARREST [None]
  - PULSE ABSENT [None]
